FAERS Safety Report 7004089-5 (Version None)
Quarter: 2010Q3

REPORT INFORMATION
  Report Type: 
  Country: None (occurrence: None)
  Receive Date: 20100920
  Receipt Date: 20100201
  Transmission Date: 20110219
  Serious: No
  Sender: FDA-Public Use
  Company Number: US-WYE-H13406010

PATIENT
  Age: 83 Year
  Sex: Male
  Weight: 72.64 kg

DRUGS (4)
  1. PRISTIQ [Suspect]
     Indication: BIPOLAR II DISORDER
     Route: 048
     Dates: start: 20100101, end: 20100128
  2. PRISTIQ [Suspect]
     Dosage: 1/2 TABLET DAILY
     Route: 048
     Dates: start: 20100129
  3. RITALIN [Concomitant]
  4. LAMOTRIGINE [Concomitant]

REACTIONS (4)
  - ABNORMAL DREAMS [None]
  - CONSTIPATION [None]
  - FATIGUE [None]
  - VISION BLURRED [None]
